FAERS Safety Report 10453492 (Version 2)
Quarter: 2014Q3

REPORT INFORMATION
  Report Type: Report from Study
  Country: AR (occurrence: AR)
  Receive Date: 20140915
  Receipt Date: 20140915
  Transmission Date: 20150326
  Serious: Yes (Death)
  Sender: FDA-Public Use
  Company Number: PHHY2014AR071368

PATIENT
  Age: 18 Year
  Sex: Female

DRUGS (1)
  1. TOBI PODHALER [Suspect]
     Active Substance: TOBRAMYCIN
     Dosage: 28 MG PER CAPSULE
     Route: 055

REACTIONS (3)
  - Oropharyngeal pain [Unknown]
  - Pruritus [Unknown]
  - Death [Fatal]

NARRATIVE: CASE EVENT DATE: 20140804
